FAERS Safety Report 9500324 (Version 1)
Quarter: 2013Q3

REPORT INFORMATION
  Report Type: Spontaneous
  Country: US (occurrence: None)
  Receive Date: 20130903
  Receipt Date: 20130903
  Transmission Date: 20140515
  Serious: Yes (Other)
  Sender: FDA-Public Use
  Company Number: KAD201308-001083

PATIENT
  Sex: 0

DRUGS (3)
  1. RIBAVIRIN [Suspect]
     Indication: INFLUENZA
     Dosage: 200 MG, THRICE DAILY
  2. AMANTADINE [Suspect]
     Indication: INFLUENZA
     Dosage: 75 MG, THRICE DAILY
  3. OSELTAMIVIR [Suspect]
     Indication: INFLUENZA
     Dosage: 50 MG, THRICE DAILY

REACTIONS (2)
  - Respiratory failure [None]
  - Off label use [None]
